FAERS Safety Report 15329915 (Version 3)
Quarter: 2019Q1

REPORT INFORMATION
  Report Type: Spontaneous
  Country: US (occurrence: US)
  Receive Date: 20180829
  Receipt Date: 20190311
  Transmission Date: 20190417
  Serious: Yes (Hospitalization, Other)
  Sender: FDA-Public Use
  Company Number: US-PFIZER INC-2018343879

PATIENT
  Age: 75 Year
  Sex: Female
  Weight: 61.23 kg

DRUGS (3)
  1. AMLODIPINE BESILATE [Suspect]
     Active Substance: AMLODIPINE BESYLATE
     Indication: BLOOD PRESSURE ABNORMAL
     Dosage: 5 MG, UNK
     Dates: start: 20180723, end: 201808
  2. AMLODIPINE BESILATE [Suspect]
     Active Substance: AMLODIPINE BESYLATE
     Dosage: UNK
     Dates: start: 20180723, end: 20180817
  3. AMLODIPINE BESILATE [Suspect]
     Active Substance: AMLODIPINE BESYLATE
     Dosage: 10 MG, UNK
     Dates: start: 201808

REACTIONS (11)
  - Eye swelling [Recovered/Resolved]
  - Eye pruritus [Recovered/Resolved]
  - Erythema [Recovered/Resolved]
  - Peripheral swelling [Recovered/Resolved]
  - Rash [Recovered/Resolved]
  - Dry eye [Recovered/Resolved]
  - Exophthalmos [Recovered/Resolved]
  - Tinnitus [Recovering/Resolving]
  - Joint swelling [Recovered/Resolved]
  - Dizziness [Recovered/Resolved]
  - Drug hypersensitivity [Recovered/Resolved]

NARRATIVE: CASE EVENT DATE: 201808
